FAERS Safety Report 7400585-7 (Version None)
Quarter: 2011Q2

REPORT INFORMATION
  Report Type: 
  Country: None (occurrence: None)
  Receive Date: 20110407
  Receipt Date: 20110403
  Transmission Date: 20111010
  Serious: Yes (Other)
  Sender: FDA-Public Use
  Company Number: US-PFIZER INC-2011066066

PATIENT
  Sex: Female
  Weight: 90.703 kg

DRUGS (6)
  1. GABAPENTIN [Suspect]
     Indication: NEURALGIA
     Dosage: 300 MG, 1X/DAY
     Route: 048
     Dates: start: 20110310, end: 20110301
  2. ACETAMINOPHEN [Concomitant]
     Dosage: UNKNOWN DOSE EVERY SIX HOURS/ DAY
  3. IBUPROFEN [Concomitant]
     Dosage: UNK
  4. GABAPENTIN [Suspect]
     Dosage: 300 MG, 2X/DAY
     Route: 048
     Dates: start: 20110301, end: 20110301
  5. DIAZEPAM [Suspect]
     Indication: MUSCLE STRAIN
     Dosage: 5 MG, UNK
     Route: 048
     Dates: start: 20110312
  6. GABAPENTIN [Suspect]
     Dosage: 300 MG, 3X/DAY
     Route: 048
     Dates: start: 20110301, end: 20110316

REACTIONS (7)
  - DISTURBANCE IN ATTENTION [None]
  - FEELING ABNORMAL [None]
  - HYPERSENSITIVITY [None]
  - DECREASED APPETITE [None]
  - SPEECH DISORDER [None]
  - INSOMNIA [None]
  - MUSCLE STRAIN [None]
